FAERS Safety Report 6244493-6 (Version None)
Quarter: 2009Q2

REPORT INFORMATION
  Report Type: 
  Country: None (occurrence: None)
  Receive Date: 20090619
  Receipt Date: 20090514
  Transmission Date: 20091009
  Serious: No
  Sender: FDA-Public Use
  Company Number: SPV1-2009-00954

PATIENT
  Age: 7 Year
  Sex: Male
  Weight: 26.3 kg

DRUGS (1)
  1. VYVANSE [Suspect]
     Indication: ATTENTION DEFICIT/HYPERACTIVITY DISORDER
     Dosage: 20 MG, 1X/DAY:QD, ORAL
     Route: 048
     Dates: start: 20090511, end: 20090511

REACTIONS (5)
  - DEPRESSED MOOD [None]
  - MYDRIASIS [None]
  - PARANOIA [None]
  - PSYCHOMOTOR HYPERACTIVITY [None]
  - TIC [None]
